FAERS Safety Report 11063326 (Version 1)
Quarter: 2015Q2

REPORT INFORMATION
  Report Type: Spontaneous
  Country: JP (occurrence: JP)
  Receive Date: 20150424
  Receipt Date: 20150424
  Transmission Date: 20150821
  Serious: Yes (Hospitalization, Other)
  Sender: FDA-Public Use
  Company Number: JP-GLAXOSMITHKLINE-B1018669A

PATIENT
  Age: 78 Year
  Sex: Female

DRUGS (14)
  1. REBAMIPIDE [Concomitant]
     Active Substance: REBAMIPIDE
     Dosage: 100 MG, BID
  2. LIPITOR [Concomitant]
     Active Substance: ATORVASTATIN CALCIUM
     Dosage: 10 MG, QD
  3. EXCEGRAN [Suspect]
     Active Substance: ZONISAMIDE
     Dosage: 200 MG, BID
     Route: 048
     Dates: end: 20140717
  4. TEGRETOL [Concomitant]
     Active Substance: CARBAMAZEPINE
     Dosage: 200 MG, BID
  5. LEUCON (ADENINE) [Concomitant]
     Dosage: 10 MG, TID
  6. LAMOTRIGINE. [Suspect]
     Active Substance: LAMOTRIGINE
     Indication: EPILEPSY
     Dosage: 100 MG, BID
     Route: 048
     Dates: start: 20140513
  7. TAKEPRON OD [Concomitant]
     Active Substance: LANSOPRAZOLE
     Dosage: 15 MG, QD
  8. CARBOCISTEINE [Concomitant]
     Active Substance: CARBOCYSTEINE
     Dosage: 500 MG, BID
  9. LAMOTRIGINE. [Suspect]
     Active Substance: LAMOTRIGINE
     Dosage: 200 MG, BID
     Route: 048
     Dates: start: 20140610, end: 20140708
  10. ALVESCO [Concomitant]
     Active Substance: CICLESONIDE
     Dosage: 200 ?G, BID
  11. OLMETEC [Concomitant]
     Active Substance: OLMESARTAN MEDOXOMIL
     Dosage: 10 MG, QD
  12. TULOBUTEROL [Concomitant]
     Active Substance: TULOBUTEROL
     Dosage: 2 MG, QD
  13. AMLODIN OD [Concomitant]
     Active Substance: AMLODIPINE BESYLATE
     Dosage: 2.5 MG, QD
  14. CEPHARANTHIN [Concomitant]
     Dosage: 1 MG, TID

REACTIONS (17)
  - Erythema multiforme [Recovered/Resolved]
  - Dermatitis exfoliative [Recovering/Resolving]
  - Drug eruption [Recovering/Resolving]
  - Lymphadenopathy [Recovering/Resolving]
  - White blood cell count increased [Recovering/Resolving]
  - Human herpesvirus 6 infection [Recovering/Resolving]
  - Erythema [Recovered/Resolved]
  - Erythema [Recovered/Resolved]
  - Pyrexia [Recovering/Resolving]
  - Oral pain [Recovering/Resolving]
  - Liver disorder [Recovering/Resolving]
  - Flushing [Recovering/Resolving]
  - Rash generalised [Recovered/Resolved]
  - Rash papular [Recovered/Resolved]
  - Drug reaction with eosinophilia and systemic symptoms [Recovering/Resolving]
  - Hypophagia [Recovering/Resolving]
  - Skin exfoliation [Recovering/Resolving]

NARRATIVE: CASE EVENT DATE: 20140620
